FAERS Safety Report 11266819 (Version 1)
Quarter: 2015Q3

REPORT INFORMATION
  Report Type: Spontaneous
  Country: US (occurrence: US)
  Receive Date: 20150713
  Receipt Date: 20150713
  Transmission Date: 20151125
  Serious: Yes (Hospitalization)
  Sender: FDA-Public Use
  Company Number: US-MPIJNJ-2013-03953

PATIENT
  Age: 75 Year
  Sex: Male
  Weight: 99.8 kg

DRUGS (3)
  1. BENDAMUSTINE [Suspect]
     Active Substance: BENDAMUSTINE
     Indication: PLASMA CELL MYELOMA
     Dosage: 279.6 MG, CYCLIC
     Route: 042
     Dates: start: 20130115, end: 20130412
  2. VELCADE [Suspect]
     Active Substance: BORTEZOMIB
     Indication: PLASMA CELL MYELOMA
     Dosage: 3 MG, CYCLIC
     Route: 042
     Dates: start: 20130115, end: 20130416
  3. DOXORUBICIN TEVA [Suspect]
     Active Substance: DOXORUBICIN
     Indication: PLASMA CELL MYELOMA
     Dosage: 70 MG, CYCLIC
     Route: 042
     Dates: start: 20130118, end: 20130412

REACTIONS (1)
  - Febrile neutropenia [Unknown]

NARRATIVE: CASE EVENT DATE: 20130504
